FAERS Safety Report 7608180-1 (Version None)
Quarter: 2011Q3

REPORT INFORMATION
  Report Type: 
  Country: None (occurrence: None)
  Receive Date: 20110714
  Receipt Date: 20110705
  Transmission Date: 20111222
  Serious: Yes (Hospitalization)
  Sender: FDA-Public Use
  Company Number: US-JNJFOC-20110702272

PATIENT
  Sex: Female
  Weight: 99.79 kg

DRUGS (4)
  1. ALVESCO [Concomitant]
     Indication: ASTHMA
     Route: 048
  2. ELMIRON [Suspect]
     Indication: CYSTITIS INTERSTITIAL
     Route: 048
     Dates: start: 20110601
  3. ELMIRON [Suspect]
     Route: 048
     Dates: start: 20000101, end: 20110601
  4. LEVOTHYROXINE [Concomitant]
     Indication: HYPOTHYROIDISM
     Route: 048
     Dates: start: 19730101

REACTIONS (5)
  - OSTEOPOROSIS [None]
  - MALAISE [None]
  - HOSPITALISATION [None]
  - HYPERCHLORHYDRIA [None]
  - HYPERTENSION [None]
